FAERS Safety Report 7554322-6 (Version None)
Quarter: 2011Q2

REPORT INFORMATION
  Report Type: 
  Country: None (occurrence: None)
  Receive Date: 20110617
  Receipt Date: 20110615
  Transmission Date: 20111010
  Serious: Yes (Hospitalization)
  Sender: FDA-Public Use
  Company Number: BR-ABBOTT-11P-020-0706142-00

PATIENT
  Sex: Male

DRUGS (2)
  1. PREDNISONE [Concomitant]
     Indication: ARTHRALGIA
     Dosage: 2 TABLETS PER DAY OR 0.5 TABLET PER DAY
     Route: 048
  2. HUMIRA [Suspect]
     Indication: RHEUMATOID ARTHRITIS
     Dates: start: 20110101

REACTIONS (5)
  - GASTROINTESTINAL INFECTION [None]
  - BACTERAEMIA [None]
  - ABDOMINAL PAIN [None]
  - DIARRHOEA [None]
  - PYREXIA [None]
